FAERS Safety Report 7826960-4 (Version None)
Quarter: 2011Q4

REPORT INFORMATION
  Report Type: 
  Country: None (occurrence: None)
  Receive Date: 20111020
  Receipt Date: 20111010
  Transmission Date: 20120403
  Serious: Yes (Hospitalization)
  Sender: FDA-Public Use
  Company Number: US-JNJFOC-20110410268

PATIENT
  Sex: Male
  Weight: 66.8 kg

DRUGS (6)
  1. REMICADE [Suspect]
     Indication: CROHN'S DISEASE
     Route: 042
     Dates: start: 20100621
  2. REMICADE [Suspect]
     Route: 042
     Dates: start: 20100920
  3. ANTIBIOTICS [Concomitant]
     Indication: INFLAMMATORY BOWEL DISEASE
  4. HUMIRA [Concomitant]
     Dates: start: 20101216
  5. OXYCODONE AND ACETAMINOPHEN [Concomitant]
  6. PROBIOTICS [Concomitant]

REACTIONS (1)
  - CROHN'S DISEASE [None]
